FAERS Safety Report 5646329-0 (Version None)
Quarter: 2008Q1

REPORT INFORMATION
  Report Type: 
  Country: None (occurrence: None)
  Receive Date: 20080227
  Receipt Date: 20080227
  Transmission Date: 20080703
  Serious: Yes (Other)
  Sender: FDA-Public Use
  Company Number: None

PATIENT
  Age: 72 Year
  Sex: Female
  Weight: 63.5036 kg

DRUGS (2)
  1. ALEVE [Suspect]
     Indication: OSTEOARTHRITIS
     Dosage: 1 TABLET 3 X DAILY PO
     Route: 048
  2. KETOPROFEN [Suspect]
     Indication: PAIN IN EXTREMITY
     Dosage: 1 CAPSULE 2 X DAILY PO
     Route: 048
     Dates: start: 20080109, end: 20080119

REACTIONS (2)
  - BLOOD PRESSURE INCREASED [None]
  - DRUG INEFFECTIVE [None]
